FAERS Safety Report 4688674-1 (Version None)
Quarter: 2005Q2

REPORT INFORMATION
  Report Type: 
  Country: None (occurrence: None)
  Receive Date: 20050610
  Receipt Date: 20050610
  Transmission Date: 20051028
  Serious: Yes (Other)
  Sender: FDA-Public Use
  Company Number: None

PATIENT
  Sex: Female
  Weight: 100.9 kg

DRUGS (3)
  1. DOXORUBICIN [Suspect]
     Indication: BREAST CANCER
     Dosage: (60 MG/M2)
     Dates: start: 20050407
  2. CYCLOPHOSPHAMIDE [Suspect]
     Dosage: (600 MG/M2) EVERY 2 WEEKS FOR 4 CYCLES, FOLLOWED BY PACLITAXEL
  3. PACLITAXEL [Suspect]
     Dosage: (175 MG/M2) EVERY 2 WEEKS FOR 4 CYCLES

REACTIONS (6)
  - ANAEMIA [None]
  - DIARRHOEA [None]
  - HYPOKALAEMIA [None]
  - HYPOVOLAEMIA [None]
  - PYREXIA [None]
  - WHITE BLOOD CELLS STOOL POSITIVE [None]
